FAERS Safety Report 5292113-X (Version None)
Quarter: 2007Q2

REPORT INFORMATION
  Report Type: 
  Country: None (occurrence: None)
  Receive Date: 20070403
  Receipt Date: 20070323
  Transmission Date: 20071010
  Serious: Yes (Life-Threatening, Hospitalization, Disabling, Other)
  Sender: FDA-Public Use
  Company Number: GXKR2007GB00933

PATIENT
  Age: 69 Year
  Sex: Female
  Weight: 51 kg

DRUGS (9)
  1. CLARITHROMYCIN [Suspect]
  2. LIPITOR [Suspect]
     Dosage: 80 MG, QD, ORAL
     Route: 048
     Dates: start: 20040619, end: 20060120
  3. ASPIRIN [Concomitant]
  4. BISOPROLOL FUMARATE [Concomitant]
  5. LANSOPRAZOLE [Concomitant]
  6. NICORANDIL (NICORANDIL) [Concomitant]
  7. PENICILLIN V [Concomitant]
  8. PLAVIX (CLOPIDOGEL SULFATE) [Concomitant]
  9. RAMIPRIL [Concomitant]

REACTIONS (5)
  - ABASIA [None]
  - DRUG INTERACTION [None]
  - LOWER RESPIRATORY TRACT INFECTION [None]
  - RENAL FAILURE ACUTE [None]
  - RHABDOMYOLYSIS [None]
